FAERS Safety Report 5275533-9 (Version None)
Quarter: 2007Q1

REPORT INFORMATION
  Report Type: 
  Country: None (occurrence: None)
  Receive Date: 20070326
  Receipt Date: 20070312
  Transmission Date: 20070707
  Serious: Yes (Other)
  Sender: FDA-Public Use
  Company Number: PHBS2007CH04526

PATIENT
  Age: 64 Year
  Sex: Female

DRUGS (2)
  1. TRILEPTAL [Suspect]
     Indication: TEMPORAL LOBE EPILEPSY
     Dosage: 300 MG, BID
     Route: 065
  2. HALDOL SOLUTAB [Suspect]
     Dosage: 1 MG, BID
     Route: 065

REACTIONS (2)
  - DRUG INTERACTION [None]
  - SOMNOLENCE [None]
